FAERS Safety Report 6657807-X (Version None)
Quarter: 2010Q1

REPORT INFORMATION
  Report Type: 
  Country: None (occurrence: None)
  Receive Date: 20100330
  Receipt Date: 20100319
  Transmission Date: 20100710
  Serious: Yes (Death)
  Sender: FDA-Public Use
  Company Number: US-ROCHE-665581

PATIENT
  Sex: Female
  Weight: 90.3 kg

DRUGS (5)
  1. TAMIFLU [Suspect]
     Route: 048
     Dates: start: 20091022, end: 20091026
  2. TRICOR [Concomitant]
  3. COZAAR [Concomitant]
  4. ASPIRIN [Concomitant]
     Dosage: DRUG: BABY ASPIRIN
  5. ACURETIC [Concomitant]

REACTIONS (2)
  - HEPATIC STEATOSIS [None]
  - INFLUENZA [None]
